FAERS Safety Report 11416560 (Version 1)
Quarter: 2015Q3

REPORT INFORMATION
  Report Type: Report from Study
  Country: FI (occurrence: FI)
  Receive Date: 20150825
  Receipt Date: 20150825
  Transmission Date: 20151125
  Serious: Yes (Other)
  Sender: FDA-Public Use
  Company Number: FI-BRISTOL-MYERS SQUIBB COMPANY-BMS-2015-054116

PATIENT
  Age: 70 Year
  Sex: Male

DRUGS (1)
  1. NIVOLUMAB [Suspect]
     Active Substance: NIVOLUMAB
     Indication: LUNG NEOPLASM MALIGNANT
     Route: 065

REACTIONS (3)
  - Back pain [Unknown]
  - Dyspnoea [Unknown]
  - Hypertension [Unknown]
